FAERS Safety Report 10264811 (Version 2)
Quarter: 2014Q2

REPORT INFORMATION
  Report Type: Spontaneous
  Country: US (occurrence: US)
  Receive Date: 20140627
  Receipt Date: 20140627
  Transmission Date: 20141212
  Serious: No
  Sender: FDA-Public Use
  Company Number: US-ENDO PHARMACEUTICALS INC.-HCTZ20140005

PATIENT
  Sex: Female
  Weight: 62.65 kg

DRUGS (1)
  1. VALSARTAN/HYDROCHLOROTHIAZIDE TALBETS 160MG/25MG [Suspect]
     Indication: PRODUCT USED FOR UNKNOWN INDICATION
     Dosage: 160/25MG
     Route: 048
     Dates: start: 2014, end: 2014

REACTIONS (3)
  - Feeling abnormal [Recovered/Resolved]
  - Fall [Recovered/Resolved]
  - Dizziness postural [Recovered/Resolved]
